FAERS Safety Report 16628268 (Version 2)
Quarter: 2019Q3

REPORT INFORMATION
  Report Type: Spontaneous
  Country: BE (occurrence: BE)
  Receive Date: 20190724
  Receipt Date: 20190831
  Transmission Date: 20191004
  Serious: Yes (Life-Threatening, Hospitalization, Congenital Anomaly)
  Sender: FDA-Public Use
  Company Number: PHHY2019BE170216

PATIENT
  Age: 20 Year
  Sex: Male
  Weight: 105 kg

DRUGS (15)
  1. PROPOLIPID [Concomitant]
     Active Substance: PROPOFOL
     Indication: INDUCTION OF ANAESTHESIA
     Dosage: 200 MG, 1 TOTAL
     Route: 042
     Dates: start: 20190311, end: 20190311
  2. CEFAZOLIN [Suspect]
     Active Substance: CEFAZOLIN
     Indication: ANTIBIOTIC PROPHYLAXIS
     Dosage: 2 G, 1 TOTAL
     Route: 042
     Dates: start: 20190311, end: 20190311
  3. PROPOLIPID [Concomitant]
     Active Substance: PROPOFOL
     Indication: SURGERY
  4. CEFAZOLIN [Suspect]
     Active Substance: CEFAZOLIN
     Indication: SURGERY
  5. TARADYL [Suspect]
     Active Substance: KETOROLAC TROMETHAMINE
     Indication: ANALGESIC THERAPY
     Dosage: 30 MG, 1 TOTAL
     Route: 042
     Dates: start: 20190311, end: 20190311
  6. LISINOPRIL. [Concomitant]
     Active Substance: LISINOPRIL
     Indication: SURGERY
     Dosage: 100 MG, 1 TOTAL
     Route: 042
     Dates: start: 20190311, end: 20190311
  7. PARACETAMOL [Suspect]
     Active Substance: ACETAMINOPHEN
     Indication: ANALGESIC THERAPY
     Dosage: 1 G, 1 TOTAL
     Route: 042
     Dates: start: 20190311, end: 20190311
  8. DEXAMETHASONE. [Concomitant]
     Active Substance: DEXAMETHASONE
     Indication: GASTROINTESTINAL DISORDER PROPHYLAXIS
     Dosage: 4 MG, 1 TOTAL
     Route: 042
     Dates: start: 20190311, end: 20190311
  9. LITICAN [Concomitant]
     Active Substance: ALIZAPRIDE HYDROCHLORIDE
     Indication: NAUSEA
     Dosage: 50 MG, 1 TOTAL
     Route: 042
     Dates: start: 20190311, end: 20190311
  10. IBUPROFEN. [Suspect]
     Active Substance: IBUPROFEN
     Indication: ANALGESIC THERAPY
     Dosage: 3 DF, QD
     Route: 048
     Dates: start: 20190311, end: 20190314
  11. SEVORANE [Suspect]
     Active Substance: SEVOFLURANE
     Indication: GENERAL ANAESTHESIA
     Dosage: 40 ML, 1 TOTAL
     Route: 055
     Dates: start: 20190311, end: 20190311
  12. KETAMINE [Concomitant]
     Active Substance: KETAMINE
     Indication: SURGERY
     Dosage: 100 MG, 1TOTAL
     Route: 042
     Dates: start: 20190311, end: 20190311
  13. CATAPRESSAN [Concomitant]
     Active Substance: CLONIDINE
     Indication: PRODUCT USED FOR UNKNOWN INDICATION
     Dosage: 300 UG, 1 TOTAL
     Route: 042
     Dates: start: 20190311, end: 20190311
  14. PARACETAMOL [Suspect]
     Active Substance: ACETAMINOPHEN
     Indication: PERIOPERATIVE ANALGESIA
     Dosage: 2 G, QD
     Route: 048
     Dates: start: 20190311, end: 20190314
  15. TRACRIUM [Concomitant]
     Active Substance: ATRACURIUM BESYLATE
     Indication: SURGERY
     Dosage: 50 MG, 1 TOTAL
     Route: 042
     Dates: start: 20190311, end: 20190311

REACTIONS (9)
  - Drug hypersensitivity [Recovering/Resolving]
  - Pruritus generalised [Recovering/Resolving]
  - Hepatic encephalopathy [Recovering/Resolving]
  - Coagulopathy [Recovering/Resolving]
  - Acne [Recovering/Resolving]
  - Jaundice [Recovering/Resolving]
  - Hepatitis fulminant [Recovering/Resolving]
  - Asthenia [Recovering/Resolving]
  - Pruritus [Recovering/Resolving]

NARRATIVE: CASE EVENT DATE: 20190313
